FAERS Safety Report 16029054 (Version 2)
Quarter: 2019Q2

REPORT INFORMATION
  Report Type: Spontaneous
  Country: US (occurrence: US)
  Receive Date: 20190304
  Receipt Date: 20190506
  Transmission Date: 20190711
  Serious: Yes (Death, Hospitalization)
  Sender: FDA-Public Use
  Company Number: PHHY2019US048113

PATIENT
  Age: 60 Year
  Sex: Male

DRUGS (4)
  1. CARBOPLATIN. [Concomitant]
     Active Substance: CARBOPLATIN
     Indication: OESOPHAGEAL CARCINOMA
     Dosage: UNK UNK, QW
     Route: 065
     Dates: start: 20140609
  2. EVEROLIMUS. [Suspect]
     Active Substance: EVEROLIMUS
     Indication: OESOPHAGEAL CARCINOMA
     Dosage: 2.5 MG, QOD
     Route: 048
     Dates: start: 20140609
  3. EVEROLIMUS. [Suspect]
     Active Substance: EVEROLIMUS
     Indication: ADENOCARCINOMA
  4. CARBOPLATIN. [Concomitant]
     Active Substance: CARBOPLATIN
     Indication: ADENOCARCINOMA

REACTIONS (4)
  - Sepsis [Fatal]
  - Intestinal ischaemia [Fatal]
  - Intestinal perforation [Fatal]
  - Product use in unapproved indication [Unknown]

NARRATIVE: CASE EVENT DATE: 20140718
